FAERS Safety Report 7603498-0 (Version None)
Quarter: 2011Q2

REPORT INFORMATION
  Report Type: 
  Country: None (occurrence: None)
  Receive Date: 20110629
  Receipt Date: 20110621
  Transmission Date: 20111010
  Serious: Yes (Hospitalization)
  Sender: FDA-Public Use
  Company Number: 2011SP028934

PATIENT
  Age: 25 Year
  Sex: Female
  Weight: 60 kg

DRUGS (1)
  1. DESLORATADINE [Suspect]
     Indication: ANTIALLERGIC THERAPY
     Dosage: 5 MG, QD, PO
     Route: 048
     Dates: start: 20110513, end: 20110515

REACTIONS (4)
  - PRODUCT FORMULATION ISSUE [None]
  - BURNING SENSATION [None]
  - PRURITUS GENERALISED [None]
  - RASH GENERALISED [None]
